FAERS Safety Report 7811722 (Version 3)
Quarter: 2013Q1

REPORT INFORMATION
  Report Type: Spontaneous
  Country: US (occurrence: US)
  Receive Date: 20110214
  Receipt Date: 20130115
  Transmission Date: 20140127
  Serious: Yes (Death, Hospitalization)
  Sender: FDA-Public Use
  Company Number: PHHY2011US11241

PATIENT
  Age: 65 Year
  Sex: Male

DRUGS (9)
  1. EXJADE [Suspect]
     Dosage: 2000 MG, QD
     Route: 048
  2. OMEPRAZOLE [Concomitant]
     Dosage: 20 MG,DAILY
     Route: 048
  3. ALDACTONE [Concomitant]
     Dosage: 12.5 MG, DAILY
     Route: 048
  4. TRAMADOL [Concomitant]
     Dosage: UNK UKN, UNK
     Route: 048
  5. ASA [Concomitant]
     Dosage: 81 MG, DAILY
     Route: 048
  6. SPIRONOLACTONE [Concomitant]
     Dosage: UNK UKN, UNK
  7. COMPAZINE [Concomitant]
     Dosage: UNK UKN, UNK
  8. GLUCOSAMINE + CHONDROITIN SULFATE [Concomitant]
     Dosage: UNK UKN, UNK
  9. LASIX [Concomitant]
     Dosage: UNK UKN, UNK

REACTIONS (28)
  - Cardiac tamponade [Fatal]
  - Dyspnoea [Fatal]
  - Orthopnoea [Fatal]
  - Pericardial effusion [Fatal]
  - Atrial fibrillation [Fatal]
  - Abdominal distension [Unknown]
  - Lobar pneumonia [Unknown]
  - Urinary tract infection [Unknown]
  - Deep vein thrombosis [Unknown]
  - Ascites [Unknown]
  - Urine output decreased [Unknown]
  - Cardiac failure [Unknown]
  - Hypertension [Unknown]
  - Erythema [Unknown]
  - Hypotension [Unknown]
  - Pneumothorax [Unknown]
  - Epstein-Barr virus infection [Unknown]
  - Somnolence [Unknown]
  - Multi-organ failure [Unknown]
  - Hepatic failure [Unknown]
  - Renal failure [Unknown]
  - Hypercalcaemia [Unknown]
  - Electrolyte imbalance [Unknown]
  - Lethargy [Unknown]
  - Ocular icterus [Unknown]
  - Oedema [Unknown]
  - Diarrhoea [Recovered/Resolved]
  - Nausea [Recovered/Resolved]
